FAERS Safety Report 8133755-3 (Version None)
Quarter: 2012Q1

REPORT INFORMATION
  Report Type: 
  Country: None (occurrence: None)
  Receive Date: 20120213
  Receipt Date: 20120213
  Transmission Date: 20120608
  Serious: Yes (Life-Threatening, Hospitalization)
  Sender: FDA-Public Use
  Company Number: None

PATIENT
  Age: 53 Year
  Sex: Female
  Weight: 52.163 kg

DRUGS (1)
  1. PREMARIN [Suspect]
     Indication: POSTMENOPAUSE
     Route: 048
     Dates: start: 20000101, end: 20090129

REACTIONS (8)
  - PULSE ABNORMAL [None]
  - PULMONARY EMBOLISM [None]
  - HYPOAESTHESIA [None]
  - PULMONARY THROMBOSIS [None]
  - LOSS OF CONSCIOUSNESS [None]
  - RESPIRATORY ARREST [None]
  - DIZZINESS [None]
  - ATRIAL FIBRILLATION [None]
